FAERS Safety Report 5011025-X (Version None)
Quarter: 2006Q2

REPORT INFORMATION
  Report Type: 
  Country: None (occurrence: None)
  Receive Date: 20060523
  Receipt Date: 20060523
  Transmission Date: 20061013
  Serious: Yes (Death)
  Sender: FDA-Public Use
  Company Number: None

PATIENT
  Age: 55 Year
  Sex: Male
  Weight: 72.5755 kg

DRUGS (1)
  1. LEXAPRO [Suspect]
     Indication: GENERALISED ANXIETY DISORDER

REACTIONS (2)
  - ALCOHOL USE [None]
  - COMPLETED SUICIDE [None]
